FAERS Safety Report 25476644 (Version 2)
Quarter: 2025Q3

REPORT INFORMATION
  Report Type: Spontaneous
  Country: US (occurrence: US)
  Receive Date: 20250625
  Receipt Date: 20250703
  Transmission Date: 20251020
  Serious: Yes (Other)
  Sender: BRISTOL-MYERS SQUIBB COMPANY
  Company Number: US-BRISTOL-MYERS SQUIBB COMPANY-2025-088928

PATIENT
  Age: 89 Year
  Sex: Female

DRUGS (1)
  1. LENALIDOMIDE [Suspect]
     Active Substance: LENALIDOMIDE
     Indication: Plasma cell myeloma
     Dosage: TAKE 1 CAPSULE BY MOUTH EVERY OTHER DAY FOR 14 DAYS FOLLOWED BY 7 DAYS OF
     Route: 048

REACTIONS (12)
  - Diarrhoea [Not Recovered/Not Resolved]
  - Constipation [Unknown]
  - Mobility decreased [Unknown]
  - Conduction disorder [Unknown]
  - Product dose omission in error [Unknown]
  - Fall [Unknown]
  - Cardiac valve disease [Unknown]
  - Dysphonia [Not Recovered/Not Resolved]
  - Upper respiratory tract congestion [Not Recovered/Not Resolved]
  - Blood pressure decreased [Not Recovered/Not Resolved]
  - Contusion [Not Recovered/Not Resolved]
  - Haemoglobin abnormal [Not Recovered/Not Resolved]
